FAERS Safety Report 8585458-9 (Version None)
Quarter: 2012Q3

REPORT INFORMATION
  Report Type: 
  Country: None (occurrence: None)
  Receive Date: 20120810
  Receipt Date: 20120803
  Transmission Date: 20120928
  Serious: Yes (Other)
  Sender: FDA-Public Use
  Company Number: US-UCBSA-059682

PATIENT
  Age: 20 Year
  Sex: Male
  Weight: 90.72 kg

DRUGS (4)
  1. KEPPRA [Suspect]
     Indication: CONVULSION
     Dosage: 5 CC OR 100 MG/ML IS EQUAL TO 500 MG OR 1000 MG, 5 ML 2 TIMES A DAY WHICH WAS 100 MG/ML
     Route: 048
     Dates: start: 20120401, end: 20120101
  2. KEPPRA XR [Suspect]
     Route: 048
     Dates: start: 20120613
  3. KEPPRA XR [Suspect]
     Indication: CONVULSION
     Route: 048
     Dates: end: 20120612
  4. XANAX [Concomitant]
     Indication: ANXIETY
     Route: 048
     Dates: start: 20100101, end: 20120601

REACTIONS (5)
  - INAPPROPRIATE SCHEDULE OF DRUG ADMINISTRATION [None]
  - JAW FRACTURE [None]
  - FALL [None]
  - CONVULSION [None]
  - SUTURE INSERTION [None]
